FAERS Safety Report 13597033 (Version 1)
Quarter: 2017Q2

REPORT INFORMATION
  Report Type: Spontaneous
  Country: JP (occurrence: JP)
  Receive Date: 20170531
  Receipt Date: 20170531
  Transmission Date: 20170830
  Serious: Yes (Other)
  Sender: FDA-Public Use
  Company Number: JP-ROCHE-1941284

PATIENT
  Age: 70 Year
  Sex: Female

DRUGS (2)
  1. TREAKISYM [Concomitant]
     Active Substance: BENDAMUSTINE HYDROCHLORIDE
     Indication: NON-HODGKIN^S LYMPHOMA
  2. RITUXAN [Suspect]
     Active Substance: RITUXIMAB
     Indication: NON-HODGKIN^S LYMPHOMA
     Dosage: 10MG/ML RITUXIMAB(GENETICAL RECOMBINATION)?FIRST CYCLE OF RITUXIMAB
     Route: 041

REACTIONS (1)
  - Leukoencephalopathy [Not Recovered/Not Resolved]
